FAERS Safety Report 24404219 (Version 2)
Quarter: 2024Q4

REPORT INFORMATION
  Report Type: Spontaneous
  Country: US (occurrence: US)
  Receive Date: 20241007
  Receipt Date: 20241112
  Transmission Date: 20250115
  Serious: No
  Sender: LEO PHARM
  Company Number: US-LEO Pharma-373986

PATIENT
  Age: 61 Year
  Sex: Male

DRUGS (1)
  1. ADBRY [Suspect]
     Active Substance: TRALOKINUMAB-LDRM
     Indication: Neurodermatitis
     Route: 058
     Dates: start: 202408

REACTIONS (3)
  - Product prescribing issue [Unknown]
  - Rash [Not Recovered/Not Resolved]
  - Pruritus [Unknown]
